FAERS Safety Report 19385614 (Version 1)
Quarter: 2021Q2

REPORT INFORMATION
  Report Type: Spontaneous
  Country: AT (occurrence: AT)
  Receive Date: 20210608
  Receipt Date: 20210608
  Transmission Date: 20210717
  Serious: Yes (Other)
  Sender: FDA-Public Use
  Company Number: AT-TEVA-2021-AT-1918961

PATIENT
  Age: 75 Year
  Sex: Male

DRUGS (1)
  1. CIPROFLOXACIN. [Suspect]
     Active Substance: CIPROFLOXACIN
     Indication: ENTERITIS INFECTIOUS
     Dosage: 2 TABLETS PER 5 DAYS, 1DF
     Route: 065
     Dates: start: 202002

REACTIONS (6)
  - Muscular weakness [Not Recovered/Not Resolved]
  - Tendon pain [Unknown]
  - Myalgia [Unknown]
  - Back pain [Unknown]
  - Paraparesis [Unknown]
  - Condition aggravated [Unknown]

NARRATIVE: CASE EVENT DATE: 20200218
